FAERS Safety Report 4647494-4 (Version None)
Quarter: 2005Q2

REPORT INFORMATION
  Report Type: 
  Country: None (occurrence: None)
  Receive Date: 20050426
  Receipt Date: 20050413
  Transmission Date: 20051028
  Serious: No
  Sender: FDA-Public Use
  Company Number: 230007M05CAN

PATIENT
  Sex: Male

DRUGS (1)
  1. REBIF [Suspect]
     Dates: end: 20000501

REACTIONS (1)
  - RENAL CELL CARCINOMA STAGE UNSPECIFIED [None]
